FAERS Safety Report 10296824 (Version 2)
Quarter: 2014Q3

REPORT INFORMATION
  Report Type: Spontaneous
  Country: US (occurrence: None)
  Receive Date: 20140708
  Receipt Date: 20140708
  Transmission Date: 20150326
  Serious: Yes (Other)
  Sender: FDA-Public Use
  Company Number: 2014SA084710

PATIENT
  Age: 49 Year
  Sex: Female

DRUGS (1)
  1. ICY HOT MEDICATED NO MESS APPLICATOR [Suspect]
     Active Substance: MENTHOL
     Indication: PRODUCT USED FOR UNKNOWN INDICATION
     Route: 061
     Dates: start: 20140621, end: 20140621

REACTIONS (4)
  - Thermal burn [None]
  - Burns second degree [None]
  - Application site burn [None]
  - Skin discolouration [None]

NARRATIVE: CASE EVENT DATE: 20140621
